FAERS Safety Report 9633925 (Version 1)
Quarter: 2013Q4

REPORT INFORMATION
  Report Type: Spontaneous
  Country: US (occurrence: US)
  Receive Date: 20131021
  Receipt Date: 20131021
  Transmission Date: 20140711
  Serious: Yes (Life-Threatening)
  Sender: FDA-Public Use
  Company Number: US-JNJFOC-20131009059

PATIENT
  Age: 51 Year
  Sex: Female

DRUGS (3)
  1. DIPHENHYDRAMINE [Suspect]
     Indication: ANGIOEDEMA
     Route: 065
  2. HYDROCORTISONE [Suspect]
     Indication: ANGIOEDEMA
     Route: 042
  3. EPINEPHRINE [Suspect]
     Indication: ANGIOEDEMA
     Route: 030

REACTIONS (1)
  - Acquired haemophilia [Unknown]
